FAERS Safety Report 15697232 (Version 3)
Quarter: 2018Q4

REPORT INFORMATION
  Report Type: Spontaneous
  Country: FR (occurrence: FR)
  Receive Date: 20181206
  Receipt Date: 20181218
  Transmission Date: 20190205
  Serious: Yes (Other)
  Sender: FDA-Public Use
  Company Number: FR-MYLANLABS-2018M1090869

PATIENT
  Age: 53 Year
  Sex: Male
  Weight: 83 kg

DRUGS (6)
  1. LERCANIDIPINE [Concomitant]
     Active Substance: LERCANIDIPINE
     Dosage: 10 UNK
     Dates: start: 201512
  2. VALSARTAN/HYDROCHLOORTHIAZIDE MYLAN 160/25 MG, FILMOMHULDE TABLETTEN [Suspect]
     Active Substance: HYDROCHLOROTHIAZIDE\VALSARTAN
     Indication: HYPERTENSION
     Dosage: UNK
     Route: 048
     Dates: start: 201512, end: 2018
  3. VALSARTAN/HYDROCHLOORTHIAZIDE MYLAN 160/25 MG, FILMOMHULDE TABLETTEN [Suspect]
     Active Substance: HYDROCHLOROTHIAZIDE\VALSARTAN
     Indication: CARDIAC DISORDER
     Dosage: UNK
     Route: 048
     Dates: start: 20151224
  4. VALSARTAN/HYDROCHLOORTHIAZIDE MYLAN 160/25 MG, FILMOMHULDE TABLETTEN [Suspect]
     Active Substance: HYDROCHLOROTHIAZIDE\VALSARTAN
     Dosage: UNK
     Route: 048
     Dates: start: 201512, end: 2018
  5. KARDEGIC [Concomitant]
     Active Substance: ASPIRIN DL-LYSINE
     Indication: PRODUCT USED FOR UNKNOWN INDICATION
     Dosage: UNK
  6. LERCANIDIPINE [Concomitant]
     Active Substance: LERCANIDIPINE
     Indication: PRODUCT USED FOR UNKNOWN INDICATION
     Dosage: 10 MILLIGRAM
     Dates: start: 201512

REACTIONS (2)
  - Squamous cell carcinoma of lung [Unknown]
  - Skin cancer [Unknown]

NARRATIVE: CASE EVENT DATE: 201709
